FAERS Safety Report 24466214 (Version 1)
Quarter: 2024Q4

REPORT INFORMATION
  Report Type: Report from Study
  Country: US (occurrence: US)
  Receive Date: 20241018
  Receipt Date: 20241018
  Transmission Date: 20250114
  Serious: No
  Sender: ROCHE
  Company Number: US-ROCHE-3544609

PATIENT
  Age: 67 Year
  Sex: Female

DRUGS (9)
  1. XOLAIR [Suspect]
     Active Substance: OMALIZUMAB
     Indication: Urticaria
     Route: 058
     Dates: start: 20240212
  2. CYCLOSPORINE [Concomitant]
     Active Substance: CYCLOSPORINE
  3. CHOLECALCIFEROL [Concomitant]
     Active Substance: CHOLECALCIFEROL
  4. IBUPROFEN [Concomitant]
     Active Substance: IBUPROFEN
  5. HYDROCHLOROTHIAZIDE [Concomitant]
     Active Substance: HYDROCHLOROTHIAZIDE
  6. PRAVASTATIN [Concomitant]
     Active Substance: PRAVASTATIN
  7. FAMOTIDINE [Concomitant]
     Active Substance: FAMOTIDINE
  8. FLUTICASONE [Concomitant]
     Active Substance: FLUTICASONE
  9. CETIRIZINE [Concomitant]
     Active Substance: CETIRIZINE HYDROCHLORIDE

REACTIONS (2)
  - Off label use [Unknown]
  - No adverse event [Unknown]
